FAERS Safety Report 8522069-5 (Version None)
Quarter: 2012Q3

REPORT INFORMATION
  Report Type: 
  Country: None (occurrence: None)
  Receive Date: 20120719
  Receipt Date: 20120713
  Transmission Date: 20120928
  Serious: Yes (Hospitalization)
  Sender: FDA-Public Use
  Company Number: DE-TEVA-348601GER

PATIENT
  Sex: Female
  Weight: 59 kg

DRUGS (11)
  1. DOXORUBICIN HCL [Suspect]
     Indication: BREAST CANCER
     Route: 042
     Dates: start: 20120419
  2. MAALOXAN [Concomitant]
     Dosage: 2 DOSAGE FORMS;
     Dates: start: 20120427
  3. PANTOPRAZOLE [Concomitant]
     Dosage: 20 MILLIGRAM;
     Dates: start: 19820101
  4. PACLITAXEL [Suspect]
     Indication: BREAST CANCER
     Route: 042
     Dates: start: 20120419
  5. LAPATINIB [Suspect]
     Indication: BREAST CANCER
     Dosage: 500 MILLIGRAM;
     Route: 048
     Dates: start: 20120419
  6. JUTABIS [Concomitant]
     Dosage: 5 MILLIGRAM;
     Dates: start: 20060101
  7. SELENIUM [Concomitant]
     Dates: start: 20120430
  8. TRASTUZUMAB [Suspect]
     Indication: BREAST CANCER
     Route: 042
     Dates: start: 20120419
  9. ORTHOMOL PLUS [Concomitant]
     Dates: start: 20120430
  10. MILK THISTLE [Concomitant]
     Dates: start: 20120430
  11. NOVALGIN [Concomitant]
     Dates: start: 19930101

REACTIONS (1)
  - PARAESTHESIA ORAL [None]
